FAERS Safety Report 5595286-4 (Version None)
Quarter: 2008Q1

REPORT INFORMATION
  Report Type: 
  Country: None (occurrence: None)
  Receive Date: 20080117
  Receipt Date: 20080110
  Transmission Date: 20080703
  Serious: Yes (Congenital Anomaly)
  Sender: FDA-Public Use
  Company Number: SE-MERCK-0801SWE00008B1

PATIENT
  Age: 0 Day
  Sex: Male

DRUGS (1)
  1. PROSCAR [Suspect]
     Route: 064

REACTIONS (1)
  - HYPOSPADIAS [None]
